FAERS Safety Report 25934200 (Version 5)
Quarter: 2025Q4

REPORT INFORMATION
  Report Type: Spontaneous
  Country: CA (occurrence: CA)
  Receive Date: 20251017
  Receipt Date: 20251216
  Transmission Date: 20260118
  Serious: Yes (Other)
  Sender: CELLTRION
  Company Number: CA-CELLTRION INC.-2025CA036094

PATIENT

DRUGS (4)
  1. TRUXIMA [Suspect]
     Active Substance: RITUXIMAB-ABBS
     Indication: Myasthenia gravis
     Dosage: 840 MG, Q WEEKLY/WEEKLY X4 WEEKS
     Route: 042
     Dates: start: 20250930
  2. TRUXIMA [Suspect]
     Active Substance: RITUXIMAB-ABBS
     Dosage: 840 MG, Q WEEKLY (QW)
     Route: 042
     Dates: start: 20250930
  3. TRUXIMA [Suspect]
     Active Substance: RITUXIMAB-ABBS
     Dosage: 1000 MILLIGRAM / DAY 1 ONLY
     Route: 042
     Dates: start: 20250930
  4. TRUXIMA [Suspect]
     Active Substance: RITUXIMAB-ABBS
     Dosage: UNK
     Dates: start: 20251118

REACTIONS (10)
  - Surgery [Unknown]
  - Poor venous access [Unknown]
  - Vision blurred [Unknown]
  - Hypoaesthesia [Unknown]
  - Asthenia [Unknown]
  - Malaise [Unknown]
  - Nasopharyngitis [Unknown]
  - Hypertension [Unknown]
  - Intentional dose omission [Unknown]
  - Intentional product use issue [Unknown]

NARRATIVE: CASE EVENT DATE: 20250930
